FAERS Safety Report 9815850 (Version 2)
Quarter: 2014Q1

REPORT INFORMATION
  Report Type: Report from Study
  Country: CA (occurrence: CA)
  Receive Date: 20140114
  Receipt Date: 20140224
  Transmission Date: 20141002
  Serious: Yes (Hospitalization, Other)
  Sender: FDA-Public Use
  Company Number: CA-JNJFOC-20140104878

PATIENT
  Age: 54 Year
  Sex: Female
  Weight: 94.1 kg

DRUGS (1)
  1. REMICADE [Suspect]
     Indication: PSORIATIC ARTHROPATHY
     Route: 042
     Dates: start: 20111219

REACTIONS (3)
  - Haemoglobin decreased [Unknown]
  - Vertigo [Unknown]
  - Syncope [Unknown]
